FAERS Safety Report 9293590 (Version 1)
Quarter: 2013Q2

REPORT INFORMATION
  Report Type: Report from Study
  Country: US (occurrence: US)
  Receive Date: 20130516
  Receipt Date: 20130516
  Transmission Date: 20140414
  Serious: Yes (Hospitalization)
  Sender: FDA-Public Use
  Company Number: US-BAXTER-2010BH029695

PATIENT
  Age: 81 Year
  Sex: Male
  Weight: 70.2 kg

DRUGS (9)
  1. GAMMAGARD LIQUID [Suspect]
     Indication: DEMENTIA ALZHEIMER^S TYPE
     Route: 042
     Dates: start: 20101126, end: 20101126
  2. GAMMAGARD LIQUID [Suspect]
     Route: 042
     Dates: start: 20100709
  3. ARICEPT [Concomitant]
     Indication: DEMENTIA ALZHEIMER^S TYPE
     Route: 048
     Dates: start: 20091215
  4. NAMENDA [Concomitant]
     Indication: DEMENTIA ALZHEIMER^S TYPE
     Route: 048
     Dates: start: 20100108
  5. ECOTRIN [Concomitant]
     Indication: CARDIOVASCULAR EVENT PROPHYLAXIS
     Route: 048
     Dates: start: 20091215
  6. MULTIVITAMINS [Concomitant]
     Indication: NUTRITIONAL SUPPLEMENTATION
     Route: 048
     Dates: start: 200901
  7. VITAMIN C [Concomitant]
     Indication: NUTRITIONAL SUPPLEMENTATION
     Route: 048
     Dates: start: 200901
  8. CIPRO [Concomitant]
     Indication: EAR INFECTION
     Route: 048
     Dates: start: 201008, end: 201009
  9. CIPRODEX [Concomitant]
     Indication: EAR INFECTION
     Dates: start: 201008, end: 201009

REACTIONS (1)
  - Transient ischaemic attack [Recovered/Resolved]
